FAERS Safety Report 8362634-1 (Version None)
Quarter: 2012Q2

REPORT INFORMATION
  Report Type: 
  Country: None (occurrence: None)
  Receive Date: 20120514
  Receipt Date: 20120430
  Transmission Date: 20120825
  Serious: Yes (Death, Other)
  Sender: FDA-Public Use
  Company Number: 012458

PATIENT
  Age: 54 Year

DRUGS (2)
  1. BUSULFEX [Suspect]
     Indication: STEM CELL TRANSPLANT
     Dosage: ORAL
     Route: 048
  2. FLUDARABINE PHOSPHATE [Concomitant]

REACTIONS (1)
  - THROMBOTIC MICROANGIOPATHY [None]
